FAERS Safety Report 18512994 (Version 1)
Quarter: 2020Q4

REPORT INFORMATION
  Report Type: Spontaneous
  Country: US (occurrence: US)
  Receive Date: 20201117
  Receipt Date: 20201117
  Transmission Date: 20210114
  Serious: No
  Sender: FDA-Public Use
  Company Number: US-PFIZER INC-2020449352

PATIENT
  Age: 65 Year
  Sex: Male

DRUGS (1)
  1. INLYTA [Suspect]
     Active Substance: AXITINIB
     Dosage: 5 MG, 2X/DAY (5 MG TWICE PER DAY FOR 21 DAYS BY MOUTH)
     Route: 048

REACTIONS (4)
  - Cardiac disorder [Unknown]
  - Peripheral swelling [Unknown]
  - Fluid retention [Unknown]
  - Abdominal distension [Unknown]
